FAERS Safety Report 8803701 (Version 1)
Quarter: 2012Q4

REPORT INFORMATION
  Report Type: 
  Country: NL (occurrence: NL)
  Receive Date: 20120924
  Receipt Date: 20120924
  Transmission Date: 20130627
  Serious: Yes (Other)
  Sender: FDA-Public Use
  Company Number: NL-AMGEN-NLDSP2012058913

PATIENT
  Age: 74 Year
  Sex: Female

DRUGS (5)
  1. ARANESP [Suspect]
     Indication: PRODUCT USED FOR UNKNOWN INDICATION
     Dosage: 130 mug, q3wk
     Route: 058
     Dates: start: 20091204, end: 20120914
  2. RENVELA [Concomitant]
  3. METOPROLOL [Concomitant]
  4. OMEPRAZOL                          /00661201/ [Concomitant]
  5. ASCAL                              /00002702/ [Concomitant]

REACTIONS (1)
  - Blood disorder [Unknown]
